FAERS Safety Report 16959434 (Version 1)
Quarter: 2019Q4

REPORT INFORMATION
  Report Type: Spontaneous
  Country: IN (occurrence: IN)
  Receive Date: 20191025
  Receipt Date: 20191025
  Transmission Date: 20200122
  Serious: Yes (Other)
  Sender: FDA-Public Use
  Company Number: IN-MICRO LABS LIMITED-ML2019-02841

PATIENT
  Age: 14 Year
  Sex: Female

DRUGS (2)
  1. CLOBAZAM. [Suspect]
     Active Substance: CLOBAZAM
     Indication: SEIZURE
     Dosage: 10 MG
  2. CARBAMAZEPINE. [Concomitant]
     Active Substance: CARBAMAZEPINE
     Indication: EPILEPSY
     Dosage: 600 MG/DAY (10 MG/KG/DAY).

REACTIONS (2)
  - Disinhibition [Recovered/Resolved]
  - Paradoxical drug reaction [Recovered/Resolved]
